FAERS Safety Report 18000755 (Version 1)
Quarter: 2020Q3

REPORT INFORMATION
  Report Type: Spontaneous
  Country: GB (occurrence: GB)
  Receive Date: 20200709
  Receipt Date: 20200709
  Transmission Date: 20201103
  Serious: Yes (Death, Hospitalization, Other)
  Sender: FDA-Public Use
  Company Number: GB-SA-2020SA176860

PATIENT

DRUGS (6)
  1. CLOPIDOGREL BISULFATE. [Suspect]
     Active Substance: CLOPIDOGREL BISULFATE
     Indication: PULMONARY EMBOLISM
  2. CLOPIDOGREL BISULFATE. [Suspect]
     Active Substance: CLOPIDOGREL BISULFATE
     Indication: PELVIC VENOUS THROMBOSIS
     Dosage: 75 MG, QD
  3. CLOPIDOGREL BISULFATE. [Suspect]
     Active Substance: CLOPIDOGREL BISULFATE
     Indication: CEREBRAL INFARCTION
  4. HEPARIN [Concomitant]
     Active Substance: HEPARIN SODIUM
     Indication: PELVIC VENOUS THROMBOSIS
     Dosage: WEIGHT ADJUSTED IV BOLUS
     Route: 040
  5. ARGATROBAN. [Suspect]
     Active Substance: ARGATROBAN
     Indication: PELVIC VENOUS THROMBOSIS
     Dosage: 0.3 UG/KG, QMN
  6. HEPARIN [Concomitant]
     Active Substance: HEPARIN SODIUM
     Dosage: STARTING INFUSION RATE OF 12UNITS/KG/HOUR
     Route: 040

REACTIONS (1)
  - Haemorrhagic transformation stroke [Fatal]
